FAERS Safety Report 8902269 (Version 2)
Quarter: 2014Q1

REPORT INFORMATION
  Report Type: Report from Study
  Country: BR (occurrence: BR)
  Receive Date: 20121113
  Receipt Date: 20140106
  Transmission Date: 20141002
  Serious: Yes (Other)
  Sender: FDA-Public Use
  Company Number: PHHY2012BR104006

PATIENT
  Sex: Male

DRUGS (4)
  1. RITALINA [Suspect]
     Indication: ATTENTION DEFICIT/HYPERACTIVITY DISORDER
     Dosage: 5 DF, DAILY
  2. TEGRETOL [Suspect]
     Indication: CONVULSION
     Dosage: 2 DF, DAILY
  3. CARBAMAZEPINE [Suspect]
     Dosage: UNK UKN, UNK
  4. AMATO [Suspect]
     Indication: CONVULSION
     Dosage: 2 DF, DAILY

REACTIONS (5)
  - Learning disorder [Not Recovered/Not Resolved]
  - Educational problem [Not Recovered/Not Resolved]
  - Apathy [Not Recovered/Not Resolved]
  - Aggression [Not Recovered/Not Resolved]
  - Convulsion [Not Recovered/Not Resolved]
